FAERS Safety Report 9886102 (Version 2)
Quarter: 2014Q1

REPORT INFORMATION
  Report Type: Spontaneous
  Country: CH (occurrence: CH)
  Receive Date: 20140210
  Receipt Date: 20140210
  Transmission Date: 20141002
  Serious: Yes (Other)
  Sender: FDA-Public Use
  Company Number: CH-JNJFOC-20120902042

PATIENT
  Age: 39 Year
  Sex: Female

DRUGS (11)
  1. ZALDIAR [Suspect]
     Indication: NASOPHARYNGITIS
     Route: 065
     Dates: start: 20120713, end: 20120716
  2. PREDNISONE [Suspect]
     Indication: NASOPHARYNGITIS
     Route: 065
     Dates: start: 20120713, end: 20120715
  3. PREDNISONE [Suspect]
     Indication: NASOPHARYNGITIS
     Route: 065
     Dates: start: 20120716, end: 20120718
  4. CIP ECO [Suspect]
     Indication: NASOPHARYNGITIS
     Route: 065
     Dates: start: 20120713, end: 20120717
  5. NASONEX [Suspect]
     Indication: NASOPHARYNGITIS
     Route: 065
     Dates: start: 20120713, end: 20120716
  6. MUCOSOLVAN [Suspect]
     Indication: PRODUCT USED FOR UNKNOWN INDICATION
     Route: 065
     Dates: start: 20120713, end: 20120713
  7. IBUPROFEN [Concomitant]
     Indication: PRODUCT USED FOR UNKNOWN INDICATION
     Route: 065
     Dates: start: 20120713, end: 20120717
  8. BUDESONIDE [Concomitant]
     Indication: PRODUCT USED FOR UNKNOWN INDICATION
     Route: 065
     Dates: start: 20120717, end: 20120721
  9. RINOFLUIMUCIL S [Concomitant]
     Indication: PRODUCT USED FOR UNKNOWN INDICATION
     Route: 065
     Dates: start: 20120717
  10. DAFALGAN [Concomitant]
     Indication: PRODUCT USED FOR UNKNOWN INDICATION
     Route: 065
     Dates: start: 20120717
  11. AUGMENTIN [Concomitant]
     Indication: PRODUCT USED FOR UNKNOWN INDICATION
     Route: 065
     Dates: start: 20120717, end: 20120723

REACTIONS (2)
  - Exposure during pregnancy [Unknown]
  - Abortion induced [Recovered/Resolved]
